FAERS Safety Report 24378519 (Version 1)
Quarter: 2024Q3

REPORT INFORMATION
  Report Type: Spontaneous
  Country: US (occurrence: US)
  Receive Date: 20240930
  Receipt Date: 20240930
  Transmission Date: 20241017
  Serious: Yes (Hospitalization, Other)
  Sender: BRISTOL MYERS SQUIBB
  Company Number: US-BRISTOL-MYERS SQUIBB COMPANY-2024-151179

PATIENT
  Age: 73 Year
  Sex: Male
  Weight: 117.48 kg

DRUGS (3)
  1. ELIQUIS [Suspect]
     Active Substance: APIXABAN
     Indication: Product used for unknown indication
     Route: 048
     Dates: start: 20210108
  2. JARDIANCE [Concomitant]
     Active Substance: EMPAGLIFLOZIN
  3. ROSUVASTATIN CALCIUM [Concomitant]
     Active Substance: ROSUVASTATIN CALCIUM
     Route: 048
     Dates: start: 20230504

REACTIONS (6)
  - Cardiac amyloidosis [Unknown]
  - Heart failure with preserved ejection fraction [Unknown]
  - Depression [Unknown]
  - Anxiety [Unknown]
  - Prostate cancer [Unknown]
  - Oedema [Unknown]

NARRATIVE: CASE EVENT DATE: 20240101
